FAERS Safety Report 10541254 (Version 3)
Quarter: 2014Q4

REPORT INFORMATION
  Report Type: Report from Study
  Country: KR (occurrence: KR)
  Receive Date: 20141024
  Receipt Date: 20141201
  Transmission Date: 20150529
  Serious: Yes (Hospitalization, Other)
  Sender: FDA-Public Use
  Company Number: KR-GLAXOSMITHKLINE-KR2014GSK006205

PATIENT
  Weight: 84 kg

DRUGS (9)
  1. ATORVASTATINE [Concomitant]
     Active Substance: ATORVASTATIN
     Dosage: 10 MG, UNK
     Route: 048
     Dates: start: 20140814
  2. SILYMARIN [Concomitant]
     Active Substance: MILK THISTLE
     Indication: ALANINE AMINOTRANSFERASE INCREASED
     Dosage: 140 MG, TID
     Dates: start: 20140918
  3. TYKERB [Suspect]
     Active Substance: LAPATINIB DITOSYLATE
     Indication: BREAST CANCER METASTATIC
     Dosage: 1000 MG, QD
     Route: 048
     Dates: start: 20140828, end: 20141004
  4. PREDNICARBATE. [Concomitant]
     Active Substance: PREDNICARBATE
     Indication: CELLULITIS
     Dosage: 60 G, PRN
     Dates: start: 20140814
  5. HYCODAN [Concomitant]
     Active Substance: HOMATROPINE METHYLBROMIDE\HYDROCODONE BITARTRATE
     Indication: MUSCULOSKELETAL PAIN
     Dosage: UNK UNK, PRN
     Route: 048
     Dates: start: 20140814
  6. HARDCAL CHEW [Concomitant]
     Indication: OSTEOPENIA
     Dosage: UNK, QD
     Route: 048
     Dates: start: 20140814
  7. BUSCOPAN [Concomitant]
     Active Substance: BUTYLSCOPOLAMINE BROMIDE
     Dosage: UNK
     Dates: start: 20140829
  8. LOPERAMIDE [Concomitant]
     Active Substance: LOPERAMIDE
     Indication: DIARRHOEA
     Dosage: 2 MG, PRN
     Route: 048
     Dates: start: 20140926
  9. VINORELBINE TARTRATE. [Suspect]
     Active Substance: VINORELBINE TARTRATE
     Indication: BREAST CANCER METASTATIC
     Dosage: 20 MG, UNK
     Dates: start: 20140828, end: 20141004

REACTIONS (1)
  - Neutropenia [Recovered/Resolved]

NARRATIVE: CASE EVENT DATE: 20141003
